FAERS Safety Report 6338440-6 (Version None)
Quarter: 2009Q3

REPORT INFORMATION
  Report Type: 
  Country: None (occurrence: None)
  Receive Date: 20090901
  Receipt Date: 20090817
  Transmission Date: 20100115
  Serious: Yes (Hospitalization)
  Sender: FDA-Public Use
  Company Number: 2008AL008759

PATIENT
  Age: 70 Year
  Sex: Female

DRUGS (62)
  1. DIGOXIN [Suspect]
     Dosage: 0.25MG, DAILY, PO
     Route: 048
     Dates: start: 20000401, end: 20090602
  2. SINGULAIR [Concomitant]
  3. GLIPIZIDE [Concomitant]
  4. LEVOTHYROXINE SODIUM [Concomitant]
  5. OMERPRAZOLE [Concomitant]
  6. CARTIA XT [Concomitant]
  7. FOSAMAX [Concomitant]
  8. CICLOPIROX [Concomitant]
  9. ADVAIR HFA [Concomitant]
  10. NAPROXEN [Concomitant]
  11. FUROSEMIDE [Concomitant]
  12. ALBUTEROL [Concomitant]
  13. PRILOSEC [Concomitant]
  14. METFORMIN HCL [Concomitant]
  15. IPRATROPIUM [Concomitant]
  16. ACTONEL [Concomitant]
  17. PROTONIX [Concomitant]
  18. QUININE SULFATE [Concomitant]
  19. PREDNISONE [Concomitant]
  20. OMNICEF [Concomitant]
  21. SPIRIVA [Concomitant]
  22. SIMVASTATIN [Concomitant]
  23. LISINOPRIL [Concomitant]
  24. NYSTATIN [Concomitant]
  25. SOTANOL [Concomitant]
  26. AMLODIPINE [Concomitant]
  27. PANTOPRAZOLE SODIUM [Concomitant]
  28. AZITHROMYCIN [Concomitant]
  29. XOPENEX [Concomitant]
  30. CARDIZEM [Concomitant]
  31. CLARITHROMYCIN [Concomitant]
  32. HUMALOG [Concomitant]
  33. LANTUS [Concomitant]
  34. NITROGLYCERIN [Concomitant]
  35. PROPOXYPHEN [Concomitant]
  36. AMOXICILLIN [Concomitant]
  37. CEFDINIR [Concomitant]
  38. IPRATROPIUM [Concomitant]
  39. PROVENTIL-HFA [Concomitant]
  40. GLIPIZIDE [Concomitant]
  41. LOTEMAX [Concomitant]
  42. COMBIVENT [Concomitant]
  43. GLUCOTROL [Concomitant]
  44. KETEK [Concomitant]
  45. NITROGLYCERIN [Concomitant]
  46. PIPERACILLIN [Concomitant]
  47. JANUVIA [Concomitant]
  48. AMINOPHYLLINE [Concomitant]
  49. REGULAR INSULIN [Concomitant]
  50. OXYGEN [Concomitant]
  51. LEVAQUIN [Concomitant]
  52. CLAVAMOX [Concomitant]
  53. ROCEPHIN [Concomitant]
  54. SATOLOL [Concomitant]
  55. ZOSYN [Concomitant]
  56. GUAIFENESIN [Concomitant]
  57. XOPENEX [Concomitant]
  58. ASPIRIN [Concomitant]
  59. LOTREL [Concomitant]
  60. SOLU-MEDROL [Concomitant]
  61. ACETAMINOPHEN [Concomitant]
  62. ZOFRAN [Concomitant]

REACTIONS (45)
  - ABDOMINAL DISCOMFORT [None]
  - ACTIVITIES OF DAILY LIVING IMPAIRED [None]
  - ANGINA PECTORIS [None]
  - ATRIAL FIBRILLATION [None]
  - AZOTAEMIA [None]
  - BRONCHITIS [None]
  - CARDIAC FAILURE [None]
  - CARDIAC MURMUR [None]
  - CARDIOMEGALY [None]
  - CHEST PAIN [None]
  - CHRONIC OBSTRUCTIVE PULMONARY DISEASE [None]
  - COUGH [None]
  - DIABETES MELLITUS [None]
  - DIABETES MELLITUS INADEQUATE CONTROL [None]
  - DIVERTICULUM [None]
  - DIZZINESS [None]
  - DUODENITIS [None]
  - DYSPNOEA [None]
  - FATIGUE [None]
  - FEAR OF DEATH [None]
  - GASTRIC POLYPS [None]
  - GASTROENTERITIS VIRAL [None]
  - GASTROINTESTINAL HAEMORRHAGE [None]
  - HAEMOGLOBIN DECREASED [None]
  - HAEMORRHOIDS [None]
  - HEART RATE ABNORMAL [None]
  - HYPERTENSION [None]
  - HYPOTENSION [None]
  - INJURY [None]
  - INTERNATIONAL NORMALISED RATIO INCREASED [None]
  - IRON DEFICIENCY ANAEMIA [None]
  - LOBAR PNEUMONIA [None]
  - MALAISE [None]
  - MIGRAINE [None]
  - MITRAL VALVE INCOMPETENCE [None]
  - NAUSEA [None]
  - OEDEMA PERIPHERAL [None]
  - OXYGEN SATURATION DECREASED [None]
  - PAIN [None]
  - PALPITATIONS [None]
  - PEPTIC ULCER [None]
  - PROTHROMBIN TIME PROLONGED [None]
  - RENAL FAILURE [None]
  - RENAL FAILURE CHRONIC [None]
  - VOMITING [None]
